FAERS Safety Report 18194827 (Version 8)
Quarter: 2022Q4

REPORT INFORMATION
  Report Type: Spontaneous
  Country: CA (occurrence: CA)
  Receive Date: 20200825
  Receipt Date: 20221216
  Transmission Date: 20230113
  Serious: Yes (Other)
  Sender: FDA-Public Use
  Company Number: CA-PFIZER INC-2020309681

PATIENT
  Age: 71 Year
  Sex: Female

DRUGS (8)
  1. XELJANZ [Suspect]
     Active Substance: TOFACITINIB CITRATE
     Indication: Rheumatoid arthritis
     Dosage: 5 MG, 1X/DAY
     Route: 048
     Dates: start: 20200727, end: 2020
  2. XELJANZ [Suspect]
     Active Substance: TOFACITINIB CITRATE
     Dosage: 5 MG, 2X/DAY
     Route: 048
     Dates: start: 202008
  3. ARAVA [Concomitant]
     Active Substance: LEFLUNOMIDE
     Dosage: 20 MG
     Route: 065
     Dates: start: 2014
  4. CALCIUM [Concomitant]
     Active Substance: CALCIUM
     Dosage: UNK (LIQUID)
  5. COLCHICINE [Concomitant]
     Active Substance: COLCHICINE
     Indication: Chondrocalcinosis
     Dosage: 0.6 MG, AS NEEDED
     Route: 065
  6. NAPROXEN [Concomitant]
     Active Substance: NAPROXEN
     Dosage: 500 MG, AS NEEDED
  7. PANTOPRAZOLE SODIUM [Concomitant]
     Active Substance: PANTOPRAZOLE SODIUM
     Dosage: 40 MG
     Route: 065
  8. PREDNISONE [Concomitant]
     Active Substance: PREDNISONE
     Dosage: UNK, AS NEEDED

REACTIONS (5)
  - Angina pectoris [Unknown]
  - Nausea [Recovered/Resolved]
  - Fatigue [Recovered/Resolved]
  - Arthritis [Unknown]
  - Condition aggravated [Not Recovered/Not Resolved]

NARRATIVE: CASE EVENT DATE: 20200101
